FAERS Safety Report 14832869 (Version 1)
Quarter: 2018Q2

REPORT INFORMATION
  Report Type: Spontaneous
  Country: FR (occurrence: FR)
  Receive Date: 20180501
  Receipt Date: 20180501
  Transmission Date: 20180711
  Serious: Yes (Other)
  Sender: FDA-Public Use
  Company Number: PHHY2017FR184825

PATIENT
  Age: 67 Year
  Sex: Male

DRUGS (7)
  1. LEVOFLOXACIN. [Suspect]
     Active Substance: LEVOFLOXACIN
     Dosage: 600 MG, BID
     Route: 048
  2. MEROPENEM. [Suspect]
     Active Substance: MEROPENEM
     Dosage: 600 MG, BID
     Route: 042
  3. MEROPENEM. [Suspect]
     Active Substance: MEROPENEM
     Indication: OSTEITIS
     Dosage: 1 G, QID
     Route: 042
  4. AMIKACIN. [Concomitant]
     Active Substance: AMIKACIN
     Indication: OSTEITIS
     Dosage: 500 MG, QD
     Route: 042
  5. LEVOFLOXACIN. [Suspect]
     Active Substance: LEVOFLOXACIN
     Indication: OSTEITIS
     Dosage: 500 MG, BID
     Route: 042
  6. AMIKACIN. [Concomitant]
     Active Substance: AMIKACIN
     Dosage: 600 MG, BID
     Route: 065
  7. RIFAMPICIN [Concomitant]
     Active Substance: RIFAMPIN
     Indication: OSTEITIS
     Dosage: 600 MG, BID
     Route: 048

REACTIONS (4)
  - Skin discolouration [Recovered/Resolved]
  - Skin hyperpigmentation [Recovered/Resolved with Sequelae]
  - Intentional product misuse [Unknown]
  - Product use in unapproved indication [Unknown]
